FAERS Safety Report 24995784 (Version 2)
Quarter: 2025Q1

REPORT INFORMATION
  Report Type: Report from Study
  Country: US (occurrence: US)
  Receive Date: 20250221
  Receipt Date: 20250304
  Transmission Date: 20250408
  Serious: Yes (Hospitalization, Other)
  Sender: EMD SERONO INC
  Company Number: US-Merck Healthcare KGaA-2025007413

PATIENT
  Age: 39 Year
  Sex: Male

DRUGS (1)
  1. MAVENCLAD [Suspect]
     Active Substance: CLADRIBINE
     Indication: Multiple sclerosis
     Dates: start: 20250121, end: 20250125

REACTIONS (2)
  - Abdominal pain [Unknown]
  - Appendicectomy [Unknown]

NARRATIVE: CASE EVENT DATE: 20250209
